FAERS Safety Report 7261332-5 (Version None)
Quarter: 2011Q1

REPORT INFORMATION
  Report Type: 
  Country: None (occurrence: None)
  Receive Date: 20110130
  Receipt Date: 20101101
  Transmission Date: 20110831
  Serious: No
  Sender: FDA-Public Use
  Company Number: US-ABBOTT-10P-163-0674791-00

PATIENT
  Age: 46 Year
  Sex: Female

DRUGS (7)
  1. CHOLESTYRAMINE [Concomitant]
     Indication: GASTROINTESTINAL DISORDER
     Dosage: 1 SCOOP
  2. HUMIRA [Suspect]
     Dates: start: 20100922
  3. HUMIRA [Suspect]
  4. PRILOSEC [Concomitant]
     Indication: GASTROOESOPHAGEAL REFLUX DISEASE
  5. HUMIRA [Suspect]
     Indication: CROHN'S DISEASE
     Dates: start: 20100811
  6. DIOVAN [Concomitant]
     Indication: HYPERTENSION
  7. VITAMIN D [Concomitant]
     Indication: PRODUCT USED FOR UNKNOWN INDICATION
     Dosage: SUPPLEMENT

REACTIONS (4)
  - DEVICE MALFUNCTION [None]
  - FISTULA [None]
  - COUGH [None]
  - LUNG INFECTION [None]
